FAERS Safety Report 8321283-1 (Version None)
Quarter: 2012Q2

REPORT INFORMATION
  Report Type: 
  Country: None (occurrence: None)
  Receive Date: 20120430
  Receipt Date: 20120423
  Transmission Date: 20120825
  Serious: Yes (Hospitalization, Other)
  Sender: FDA-Public Use
  Company Number: US-BAYER-2011-116856

PATIENT
  Age: 33 Year
  Sex: Female
  Weight: 103.86 kg

DRUGS (15)
  1. YASMIN [Suspect]
     Indication: CONTRACEPTION
     Dosage: UNK
     Dates: start: 20020101, end: 20020101
  2. GLUCOPHAGE XR [Concomitant]
     Dosage: 500 MG/TAB
     Route: 048
  3. PROAIR HFA [Concomitant]
     Indication: ASTHMA
     Dosage: UNK
     Dates: start: 20070101
  4. IBUPROFEN [Concomitant]
     Dosage: UNK UNK, PRN
  5. WELLBUTRIN [Concomitant]
     Indication: DEPRESSION
     Dosage: UNK
     Dates: start: 20090101
  6. ALBUTEROL [Concomitant]
     Dosage: 90MCG/AERO
     Route: 045
     Dates: start: 19910101, end: 20070101
  7. SYNTHROID [Concomitant]
     Indication: HYPOTHYROIDISM
     Dosage: 100MCG/TAB
     Route: 048
     Dates: start: 19920101
  8. COUMADIN [Concomitant]
     Dosage: UNK
     Dates: start: 20020101
  9. MULTI-VITAMIN [Concomitant]
     Dosage: UNK
     Dates: start: 20010101
  10. COUMADIN [Concomitant]
     Dosage: UNK
     Dates: start: 20090101, end: 20100101
  11. LOVENOX [Concomitant]
     Dosage: UNK
     Dates: start: 20090101
  12. HEPARIN [Concomitant]
     Dosage: UNK
     Dates: start: 20020101
  13. ADVAIR DISKUS 100/50 [Concomitant]
     Indication: ASTHMA
     Dosage: UNK
     Dates: start: 19980101
  14. SEREVENT [Concomitant]
  15. FLOVENT [Concomitant]
     Dosage: 110MCG 2 PUFFS B.I.D.

REACTIONS (7)
  - DEEP VEIN THROMBOSIS [None]
  - ANXIETY [None]
  - FEAR [None]
  - PAIN [None]
  - GENERAL PHYSICAL HEALTH DETERIORATION [None]
  - THROMBOSIS [None]
  - EMOTIONAL DISTRESS [None]
